FAERS Safety Report 14898511 (Version 1)
Quarter: 2018Q2

REPORT INFORMATION
  Report Type: Spontaneous
  Country: US (occurrence: US)
  Receive Date: 20180515
  Receipt Date: 20180515
  Transmission Date: 20180711
  Serious: No
  Sender: FDA-Public Use
  Company Number: US-ALLERGAN-1771700US

PATIENT
  Age: 50 Year
  Sex: Male

DRUGS (2)
  1. CONDYLOX [Suspect]
     Active Substance: PODOFILOX
     Indication: HERPES ZOSTER
     Dosage: UNK, BID
     Route: 061
     Dates: end: 20171212
  2. ATORVASTATIN [Concomitant]
     Active Substance: ATORVASTATIN
     Indication: PRODUCT USED FOR UNKNOWN INDICATION
     Dosage: UNK
     Route: 065

REACTIONS (7)
  - Application site rash [Not Recovered/Not Resolved]
  - Off label use [Unknown]
  - Hyperaesthesia [Not Recovered/Not Resolved]
  - Application site irritation [Unknown]
  - Genital pain [Unknown]
  - Application site erythema [Unknown]
  - Skin discolouration [Unknown]

NARRATIVE: CASE EVENT DATE: 201712
